FAERS Safety Report 5039262-9 (Version None)
Quarter: 2006Q2

REPORT INFORMATION
  Report Type: 
  Country: None (occurrence: None)
  Receive Date: 20060629
  Receipt Date: 20060619
  Transmission Date: 20061013
  Serious: Yes (Death)
  Sender: FDA-Public Use
  Company Number: JP-ROCHE-452619

PATIENT
  Age: 62 Year
  Sex: Male
  Weight: 42 kg

DRUGS (4)
  1. ROCEPHIN [Suspect]
     Indication: PNEUMONIA
     Dosage: ROUTE REPORTED AS INTRAVENOUS (NOT OTHERWISE SPECIFIED).
     Route: 042
     Dates: start: 20060424, end: 20060425
  2. DALACIN S [Suspect]
     Indication: HYPERSENSITIVITY
     Dosage: REPORTED AS CLINDAMYCIN PHOSPHATE.
     Route: 041
     Dates: start: 20060425, end: 20060425
  3. MEROPEN [Suspect]
     Indication: HYPERSENSITIVITY
     Dosage: REPORTED AS MEROPENEM TRIHYDRATE.
     Route: 041
     Dates: start: 20060425, end: 20060425
  4. AMIKACIN SULFATE [Suspect]
     Indication: HYPERSENSITIVITY
     Route: 041
     Dates: start: 20060426, end: 20060426

REACTIONS (6)
  - MOUTH BREATHING [None]
  - OXYGEN SATURATION DECREASED [None]
  - RASH [None]
  - RESPIRATORY DEPRESSION [None]
  - THERAPY NON-RESPONDER [None]
  - WHEEZING [None]
